FAERS Safety Report 18323528 (Version 2)
Quarter: 2020Q4

REPORT INFORMATION
  Report Type: Report from Study
  Country: CA (occurrence: CA)
  Receive Date: 20200928
  Receipt Date: 20201127
  Transmission Date: 20210113
  Serious: Yes (Hospitalization)
  Sender: FDA-Public Use
  Company Number: CA-JNJFOC-20200932406

PATIENT
  Age: 61 Year
  Sex: Female

DRUGS (4)
  1. STELARA [Suspect]
     Active Substance: USTEKINUMAB
  2. FENTANYL. [Concomitant]
     Active Substance: FENTANYL
     Indication: PRODUCT USED FOR UNKNOWN INDICATION
     Route: 065
     Dates: start: 20200930
  3. FENTANYL. [Suspect]
     Active Substance: FENTANYL
     Indication: PRODUCT USED FOR UNKNOWN INDICATION
     Route: 065
     Dates: start: 20200930
  4. STELARA [Suspect]
     Active Substance: USTEKINUMAB
     Indication: CROHN^S DISEASE
     Route: 058

REACTIONS (7)
  - Neuropathy peripheral [Unknown]
  - Pancreatic neoplasm [Unknown]
  - Adverse event [Unknown]
  - Therapeutic response decreased [Unknown]
  - Crohn^s disease [Not Recovered/Not Resolved]
  - Carpal tunnel syndrome [Unknown]
  - Small fibre neuropathy [Unknown]

NARRATIVE: CASE EVENT DATE: 2020
